FAERS Safety Report 23466753 (Version 1)
Quarter: 2024Q1

REPORT INFORMATION
  Report Type: Spontaneous
  Country: US (occurrence: None)
  Receive Date: 20240201
  Receipt Date: 20240201
  Transmission Date: 20240409
  Serious: Yes (Hospitalization)
  Sender: FDA-Public Use
  Company Number: None

PATIENT
  Age: 69 Year
  Sex: Male
  Weight: 123.2 kg

DRUGS (1)
  1. CISPLATIN [Suspect]
     Active Substance: CISPLATIN

REACTIONS (9)
  - Asthenia [None]
  - Fatigue [None]
  - Pneumonia [None]
  - Dehydration [None]
  - Blood urea increased [None]
  - Fluid intake reduced [None]
  - Blood creatinine increased [None]
  - Antineutrophil cytoplasmic antibody increased [None]
  - Troponin increased [None]

NARRATIVE: CASE EVENT DATE: 20240124
